FAERS Safety Report 19566649 (Version 25)
Quarter: 2024Q3

REPORT INFORMATION
  Report Type: Report from Study
  Country: MX (occurrence: MX)
  Receive Date: 20210716
  Receipt Date: 20240828
  Transmission Date: 20241017
  Serious: Yes (Other)
  Sender: TAKEDA
  Company Number: MX-TAKEDA-MX202007299

PATIENT
  Age: 9 Year
  Sex: Male
  Weight: 27 kg

DRUGS (18)
  1. IDURSULFASE [Suspect]
     Active Substance: IDURSULFASE
     Indication: Mucopolysaccharidosis II
     Dosage: 3 DOSAGE FORM, QD
     Route: 042
     Dates: start: 20100920
  2. IDURSULFASE [Suspect]
     Active Substance: IDURSULFASE
     Dosage: 3 DOSAGE FORM
     Route: 042
     Dates: start: 201009
  3. IDURSULFASE [Suspect]
     Active Substance: IDURSULFASE
     Dosage: 2 DOSAGE FORM, 1/WEEK
     Route: 042
     Dates: start: 20130601
  4. IDURSULFASE [Suspect]
     Active Substance: IDURSULFASE
     Dosage: 2 DOSAGE FORM, 1/WEEK
     Route: 042
     Dates: start: 20140704
  5. IDURSULFASE [Suspect]
     Active Substance: IDURSULFASE
     Dosage: 2 DOSAGE FORM, 1/WEEK
     Route: 042
     Dates: start: 20200218
  6. IDURSULFASE [Suspect]
     Active Substance: IDURSULFASE
     Dosage: 2 DOSAGE FORM, 1/WEEK
     Route: 042
     Dates: start: 20200310
  7. IDURSULFASE [Suspect]
     Active Substance: IDURSULFASE
     Dosage: 2 DOSAGE FORM, 1/WEEK
     Route: 042
     Dates: start: 20200414
  8. IDURSULFASE [Suspect]
     Active Substance: IDURSULFASE
     Dosage: 2 DOSAGE FORM
     Route: 065
     Dates: start: 20200630
  9. IDURSULFASE [Suspect]
     Active Substance: IDURSULFASE
     Dosage: 21 MILLIGRAM, 1/WEEK
     Route: 042
  10. IDURSULFASE [Suspect]
     Active Substance: IDURSULFASE
     Dosage: 12 MILLIGRAM, 1/WEEK
     Route: 042
  11. IDURSULFASE [Suspect]
     Active Substance: IDURSULFASE
     Dosage: 3.5 DOSAGE FORM, 1/WEEK
     Route: 042
  12. IDURSULFASE [Suspect]
     Active Substance: IDURSULFASE
     Dosage: 3 DOSAGE FORM, QD
     Route: 042
  13. IDURSULFASE [Suspect]
     Active Substance: IDURSULFASE
     Dosage: 3 DOSAGE FORM, 1/WEEK
     Route: 065
  14. IDURSULFASE [Suspect]
     Active Substance: IDURSULFASE
     Dosage: 3 DOSAGE FORM, 1/WEEK
     Route: 042
  15. IDURSULFASE [Suspect]
     Active Substance: IDURSULFASE
     Dosage: 3 DOSAGE FORM
     Route: 042
  16. IDURSULFASE [Suspect]
     Active Substance: IDURSULFASE
     Dosage: 3 DOSAGE FORM, 1/WEEK
     Route: 042
  17. ACETAMINOPHEN [Concomitant]
     Active Substance: ACETAMINOPHEN
     Indication: Premedication
     Dosage: UNK
     Route: 065
  18. FLUOXETINE [Concomitant]
     Active Substance: FLUOXETINE HYDROCHLORIDE
     Indication: Antidepressant therapy
     Dosage: UNK
     Route: 065

REACTIONS (10)
  - COVID-19 [Not Recovered/Not Resolved]
  - Influenza [Not Recovered/Not Resolved]
  - Drug ineffective [Not Recovered/Not Resolved]
  - Pharyngitis [Recovering/Resolving]
  - Product availability issue [Unknown]
  - Inappropriate schedule of product administration [Recovering/Resolving]
  - Product dose omission issue [Not Recovered/Not Resolved]
  - Circumstance or information capable of leading to medication error [Unknown]
  - Headache [Recovering/Resolving]
  - Pyrexia [Recovering/Resolving]

NARRATIVE: CASE EVENT DATE: 20200211
